FAERS Safety Report 5605620-4 (Version None)
Quarter: 2008Q1

REPORT INFORMATION
  Report Type: 
  Country: None (occurrence: None)
  Receive Date: 20080123
  Receipt Date: 20080123
  Transmission Date: 20080703
  Serious: Yes (Life-Threatening)
  Sender: FDA-Public Use
  Company Number: None

PATIENT
  Age: 19 Year
  Sex: Female
  Weight: 39.9165 kg

DRUGS (6)
  1. INFED [Suspect]
     Indication: IRON DEFICIENCY ANAEMIA
     Dosage: 900 MG X1 IV DRIP
     Route: 041
     Dates: start: 20080118, end: 20080118
  2. INFED [Suspect]
     Indication: PREGNANCY
     Dosage: 900 MG X1 IV DRIP
     Route: 041
     Dates: start: 20080118, end: 20080118
  3. DROPERIDOL [Concomitant]
  4. REGLAN [Concomitant]
  5. HYDROXYZINE [Concomitant]
  6. VITAMIN B6 [Concomitant]

REACTIONS (5)
  - BACK PAIN [None]
  - DRUG EXPOSURE DURING PREGNANCY [None]
  - DYSPNOEA [None]
  - INFUSION RELATED REACTION [None]
  - SWELLING FACE [None]
